FAERS Safety Report 13084377 (Version 1)
Quarter: 2017Q1

REPORT INFORMATION
  Report Type: Spontaneous
  Country: US (occurrence: US)
  Receive Date: 20170102
  Receipt Date: 20170102
  Transmission Date: 20170428
  Serious: Yes (Life-Threatening)
  Sender: FDA-Public Use
  Company Number: None

PATIENT
  Age: 83 Year
  Sex: Female
  Weight: 65.25 kg

DRUGS (8)
  1. CRESTOR [Concomitant]
     Active Substance: ROSUVASTATIN CALCIUM
  2. SYNTHROID [Concomitant]
     Active Substance: LEVOTHYROXINE SODIUM
  3. CUMBIGAN [Concomitant]
  4. WARFARIN [Concomitant]
     Active Substance: WARFARIN
  5. OXYCODONE [Concomitant]
     Active Substance: OXYCODONE
  6. LUMIGAN [Concomitant]
     Active Substance: BIMATOPROST
  7. MYRBETRIQ [Suspect]
     Active Substance: MIRABEGRON
     Indication: HYPERTONIC BLADDER
     Dosage: ?          QUANTITY:30 TABLET(S);?
     Route: 048
     Dates: start: 20161117, end: 20161118
  8. LISINOPROL [Concomitant]
     Active Substance: LISINOPRIL

REACTIONS (4)
  - Swollen tongue [None]
  - Drug ineffective [None]
  - Oropharyngeal pain [None]
  - Dysphonia [None]

NARRATIVE: CASE EVENT DATE: 20161118
